FAERS Safety Report 19520166 (Version 2)
Quarter: 2021Q3

REPORT INFORMATION
  Report Type: Spontaneous
  Country: AU (occurrence: AU)
  Receive Date: 20210712
  Receipt Date: 20210721
  Transmission Date: 20211014
  Serious: Yes (Hospitalization)
  Sender: FDA-Public Use
  Company Number: AU-FERRINGPH-2021FE04410

PATIENT
  Age: 75 Year
  Sex: Male

DRUGS (1)
  1. FIRMAGON [Suspect]
     Active Substance: DEGARELIX ACETATE
     Indication: PROSTATE CANCER
     Route: 058

REACTIONS (5)
  - Abdominal tenderness [Recovering/Resolving]
  - Incorrect route of product administration [Recovered/Resolved]
  - Injection site pain [Recovering/Resolving]
  - Wrong technique in product usage process [Recovered/Resolved]
  - Vomiting [Recovering/Resolving]

NARRATIVE: CASE EVENT DATE: 20210706
